FAERS Safety Report 4356725-X (Version None)
Quarter: 2004Q2

REPORT INFORMATION
  Report Type: 
  Country: None (occurrence: None)
  Receive Date: 20040507
  Receipt Date: 20040428
  Transmission Date: 20050107
  Serious: Yes (Death, Disabling)
  Sender: FDA-Public Use
  Company Number: HQWYE725117SEP03

PATIENT

DRUGS (1)
  1. DIMETAPP [Suspect]
     Indication: NASOPHARYNGITIS
     Dosage: UNKNOWN, ORAL
     Route: 048
     Dates: start: 19980101

REACTIONS (1)
  - HAEMORRHAGIC STROKE [None]
